FAERS Safety Report 17163408 (Version 1)
Quarter: 2019Q4

REPORT INFORMATION
  Report Type: Report from Study
  Country: US (occurrence: US)
  Receive Date: 20191217
  Receipt Date: 20191217
  Transmission Date: 20200122
  Serious: Yes (Hospitalization)
  Sender: FDA-Public Use
  Company Number: US-BAYER-2019-225943

PATIENT
  Age: 72 Year
  Sex: Female

DRUGS (1)
  1. STIVARGA [Suspect]
     Active Substance: REGORAFENIB
     Indication: COLON CANCER
     Dosage: 80 MG, QD WHOLE WITH WATER AND LOWFAT MEAL ONCE DAILY FOR 3 WEEKS ON AND 1 WEEK OFF
     Dates: start: 20191011, end: 20191028

REACTIONS (2)
  - Off label use [None]
  - Hospitalisation [Not Recovered/Not Resolved]

NARRATIVE: CASE EVENT DATE: 20191011
